FAERS Safety Report 15708872 (Version 2)
Quarter: 2020Q4

REPORT INFORMATION
  Report Type: Spontaneous
  Country: US (occurrence: US)
  Receive Date: 20181211
  Receipt Date: 20201113
  Transmission Date: 20210113
  Serious: Yes (Other)
  Sender: FDA-Public Use
  Company Number: US-LUPIN HEALTHCARE (UK) LIMITED-2018-08470

PATIENT
  Sex: Male
  Weight: 91.61 kg

DRUGS (1)
  1. LISINOPRIL TABLETS USP, 10MG [Suspect]
     Active Substance: LISINOPRIL
     Indication: HYPERTENSION
     Dosage: 10 MG, QD
     Route: 048
     Dates: end: 20181018

REACTIONS (6)
  - Intestinal angioedema [Recovered/Resolved]
  - Colon cancer [Unknown]
  - Helicobacter infection [Unknown]
  - Hypotension [Unknown]
  - Hypertension [Unknown]
  - Asthenia [Recovered/Resolved]
